FAERS Safety Report 21805269 (Version 2)
Quarter: 2025Q3

REPORT INFORMATION
  Report Type: Spontaneous
  Country: EU (occurrence: EU)
  Receive Date: 20230102
  Receipt Date: 20250814
  Transmission Date: 20251020
  Serious: Yes (Hospitalization, Other)
  Sender: AUROBINDO
  Company Number: EU-AMAROX PHARMA GMBH-AMR2022ES03125

PATIENT
  Age: 54 Year
  Sex: Male

DRUGS (2)
  1. OLANZAPINE [Suspect]
     Active Substance: OLANZAPINE
     Indication: Dissociative identity disorder
     Dosage: 5 MILLIGRAM, ONCE A DAY (AT BEDTIME FOR 2 YEARS)
     Route: 065
  2. OLANZAPINE [Suspect]
     Active Substance: OLANZAPINE
     Indication: Insomnia

REACTIONS (3)
  - Neuroleptic malignant syndrome [Recovering/Resolving]
  - Muscle rigidity [Recovering/Resolving]
  - Cognitive disorder [Recovering/Resolving]
